FAERS Safety Report 9320414 (Version 2)
Quarter: 2013Q4

REPORT INFORMATION
  Report Type: Spontaneous
  Country: US (occurrence: US)
  Receive Date: 20130530
  Receipt Date: 20131011
  Transmission Date: 20140711
  Serious: Yes (Hospitalization)
  Sender: FDA-Public Use
  Company Number: US-B.I. PHARMACEUTICALS,INC./RIDGEFIELD-2013-BI-14567BP

PATIENT
  Age: 78 Year
  Sex: Male

DRUGS (6)
  1. PRADAXA [Suspect]
     Indication: ATRIAL FIBRILLATION
     Dosage: 300 MG
     Route: 048
     Dates: start: 20101112, end: 20110707
  2. PRIMIDONE [Concomitant]
     Dosage: 100 MG
     Route: 048
  3. LOSARTAN [Concomitant]
     Dosage: 50 MG
  4. B12 [Concomitant]
  5. IRON [Concomitant]
  6. THERMO TABS [Concomitant]
     Dosage: 180 MG
     Route: 048

REACTIONS (5)
  - Gastrointestinal haemorrhage [Unknown]
  - Anaemia [Unknown]
  - Ischaemic stroke [Unknown]
  - Fall [Unknown]
  - Fall [Unknown]
